FAERS Safety Report 22519459 (Version 1)
Quarter: 2023Q2

REPORT INFORMATION
  Report Type: Other
  Country: DK (occurrence: DK)
  Receive Date: 20230605
  Receipt Date: 20230605
  Transmission Date: 20230722
  Serious: Yes (Hospitalization)
  Sender: FDA-Public Use
  Company Number: DK-ALVOGEN-2023091538

PATIENT
  Sex: Male

DRUGS (3)
  1. METHOTREXATE [Suspect]
     Active Substance: METHOTREXATE
     Indication: Sarcoidosis
     Dosage: AS MONOTHERAPY FOR 3 YEARS.
  2. METHOTREXATE [Suspect]
     Active Substance: METHOTREXATE
     Indication: Sarcoidosis
     Dosage: WAS ADDED 6 YEARS AGO ALONG WITH CORTICOSTEROID.
  3. METHOTREXATE [Suspect]
     Active Substance: METHOTREXATE
     Indication: Sarcoidosis
     Dosage: STARTED AS MONOTHERAPY FOR 3 YEARS.

REACTIONS (3)
  - Immunodeficiency [Unknown]
  - Atypical mycobacterial infection [Unknown]
  - Off label use [Unknown]
